FAERS Safety Report 5265889-5 (Version None)
Quarter: 2007Q1

REPORT INFORMATION
  Report Type: 
  Country: None (occurrence: None)
  Receive Date: 20070312
  Receipt Date: 20070312
  Transmission Date: 20070707
  Serious: No
  Sender: FDA-Public Use
  Company Number: None

PATIENT
  Sex: Male
  Weight: 65.7716 kg

DRUGS (1)
  1. BACTRIM DS [Suspect]
     Indication: ACNE
     Dosage: ONE TAB DAILY PO
     Route: 048
     Dates: start: 20060301, end: 20070105

REACTIONS (3)
  - HEADACHE [None]
  - PAPILLOEDEMA [None]
  - VISION BLURRED [None]
